FAERS Safety Report 9105113 (Version 1)
Quarter: 2013Q1

REPORT INFORMATION
  Report Type: Spontaneous
  Country: ES (occurrence: ES)
  Receive Date: 20130220
  Receipt Date: 20130220
  Transmission Date: 20140127
  Serious: Yes (Other)
  Sender: FDA-Public Use
  Company Number: ES-009507513-1302ESP008477

PATIENT
  Age: 76 Year
  Sex: Male

DRUGS (11)
  1. SINEMET 25/250 MG COMPRIMIDOS [Suspect]
     Indication: PARKINSON^S DISEASE
     Dosage: 4 DF, QD
     Route: 048
     Dates: start: 20090619
  2. MIRAPEXIN [Concomitant]
     Indication: PARKINSON^S DISEASE
     Dosage: UNK
     Route: 048
     Dates: start: 2007
  3. RISEDRONATE SODIUM [Concomitant]
     Route: 048
  4. IDEOS [Concomitant]
     Route: 048
  5. RIVOTRIL [Concomitant]
     Route: 048
  6. PROCRIN [Concomitant]
     Indication: PROSTATE CANCER
     Route: 048
  7. PROBEN [Concomitant]
     Indication: PROSTATE CANCER
     Route: 048
  8. SUMIAL [Concomitant]
     Route: 048
  9. TRAMADOL HYDROCHLORIDE [Concomitant]
     Route: 048
  10. TORSEMIDE [Concomitant]
     Route: 048
  11. OMEPRAZOLE [Concomitant]
     Route: 048

REACTIONS (2)
  - Scleroderma [Not Recovered/Not Resolved]
  - Eosinophilic fasciitis [Not Recovered/Not Resolved]
